FAERS Safety Report 9140237 (Version 1)
Quarter: 2013Q1

REPORT INFORMATION
  Report Type: Spontaneous
  Country: FR (occurrence: FR)
  Receive Date: 20130305
  Receipt Date: 20130305
  Transmission Date: 20140127
  Serious: Yes (Hospitalization, Other)
  Sender: FDA-Public Use
  Company Number: FR-009507513-1302FRA013290

PATIENT
  Age: 53 None
  Sex: Female

DRUGS (5)
  1. EMEND [Suspect]
     Indication: PROPHYLAXIS OF NAUSEA AND VOMITING
     Dosage: 125 MG, QD
     Route: 048
     Dates: start: 20121126, end: 20121126
  2. EMEND [Interacting]
     Indication: PROPHYLAXIS OF NAUSEA AND VOMITING
     Dosage: 80 MG, QD
     Route: 048
     Dates: start: 20121127, end: 20121128
  3. IFOSFAMIDE [Interacting]
     Indication: UTERINE LEIOMYOSARCOMA
     Dosage: 4025 MG, QD
     Route: 042
     Dates: start: 20121126, end: 20121128
  4. DOXORUBICIN [Concomitant]
     Indication: UTERINE LEIOMYOSARCOMA
     Dosage: UNK
     Route: 042
     Dates: start: 20121126, end: 20121128
  5. LEVOTHYROX [Concomitant]
     Indication: PRODUCT USED FOR UNKNOWN INDICATION

REACTIONS (2)
  - Encephalopathy [Recovered/Resolved]
  - Drug interaction [Unknown]
